FAERS Safety Report 9633270 (Version 2)
Quarter: 2013Q4

REPORT INFORMATION
  Report Type: Report from Study
  Country: BR (occurrence: BR)
  Receive Date: 20131021
  Receipt Date: 20131104
  Transmission Date: 20140711
  Serious: Yes (Death, Hospitalization, Other)
  Sender: FDA-Public Use
  Company Number: PHHY2013BR117784

PATIENT
  Sex: Female
  Weight: 55 kg

DRUGS (1)
  1. SANDOSTATIN LAR [Suspect]
     Indication: NEUROENDOCRINE TUMOUR
     Dosage: 30 MG, QMO
     Route: 030
     Dates: start: 201306, end: 201309

REACTIONS (5)
  - Local swelling [Fatal]
  - Diarrhoea [Fatal]
  - Vomiting [Fatal]
  - Decreased appetite [Fatal]
  - Weight decreased [Recovering/Resolving]
